FAERS Safety Report 5364355-6 (Version None)
Quarter: 2007Q2

REPORT INFORMATION
  Report Type: 
  Country: None (occurrence: None)
  Receive Date: 20070618
  Receipt Date: 20070601
  Transmission Date: 20071010
  Serious: Yes (Hospitalization)
  Sender: FDA-Public Use
  Company Number: 8024188

PATIENT
  Age: 34 Year
  Sex: Male
  Weight: 65.8 kg

DRUGS (6)
  1. KEPPRA [Suspect]
     Indication: EPILEPSY
     Dosage: 250 MG 2/D PO
     Route: 048
     Dates: start: 20070401, end: 20070101
  2. KEPPRA [Suspect]
     Indication: EPILEPSY
     Dosage: 1000 MG /D PO
     Route: 048
     Dates: start: 20070415, end: 20070518
  3. EPITOMAX [Concomitant]
  4. GARDENAL /00023201/ [Concomitant]
  5. SERESTA [Concomitant]
  6. DEPAKENE [Concomitant]

REACTIONS (18)
  - ANOREXIA [None]
  - ASTERIXIS [None]
  - ASTHENIA [None]
  - CHOLANGITIS SCLEROSING [None]
  - CHOLESTASIS [None]
  - CHROMATURIA [None]
  - DIARRHOEA [None]
  - FOOD AVERSION [None]
  - GENERAL PHYSICAL HEALTH DETERIORATION [None]
  - HEPATOTOXICITY [None]
  - JAUNDICE [None]
  - NERVOUSNESS [None]
  - PRURITUS [None]
  - RASH [None]
  - SOMNOLENCE [None]
  - TRANSAMINASES INCREASED [None]
  - VIRAL INFECTION [None]
  - WEIGHT DECREASED [None]
